FAERS Safety Report 16541604 (Version 1)
Quarter: 2019Q3

REPORT INFORMATION
  Report Type: Spontaneous
  Country: CA (occurrence: CA)
  Receive Date: 20190708
  Receipt Date: 20190708
  Transmission Date: 20191004
  Serious: Yes (Hospitalization, Other)
  Sender: FDA-Public Use
  Company Number: CA-TEVA-2019-CA-1072540

PATIENT
  Age: 3 Year
  Sex: Male
  Weight: 13 kg

DRUGS (5)
  1. DOXORUBICIN HYDROCHLORIDE INJECTION [Concomitant]
     Active Substance: DOXORUBICIN HYDROCHLORIDE
  2. ONCOVIN [Concomitant]
     Active Substance: VINCRISTINE SULFATE
  3. CYCLOPHOSPHAMIDE. [Concomitant]
     Active Substance: CYCLOPHOSPHAMIDE
  4. ETOPOSIDE. [Concomitant]
     Active Substance: ETOPOSIDE
  5. CISPLATIN INJECTION [Suspect]
     Active Substance: CISPLATIN
     Indication: NEUROBLASTOMA
     Route: 042

REACTIONS (5)
  - Hyponatraemia [Recovered/Resolved with Sequelae]
  - Renal tubular disorder [Recovered/Resolved with Sequelae]
  - Hypokalaemia [Recovered/Resolved with Sequelae]
  - Electrolyte imbalance [Recovered/Resolved with Sequelae]
  - Hypophosphataemia [Recovered/Resolved with Sequelae]
